FAERS Safety Report 20672265 (Version 1)
Quarter: 2022Q2

REPORT INFORMATION
  Report Type: Spontaneous
  Country: US (occurrence: US)
  Receive Date: 20220405
  Receipt Date: 20220405
  Transmission Date: 20220721
  Serious: Yes (Other)
  Sender: FDA-Public Use
  Company Number: US-SA-SAC20220401000790

PATIENT
  Age: 55 Year
  Sex: Female

DRUGS (1)
  1. ZANTAC [Suspect]
     Active Substance: RANITIDINE HYDROCHLORIDE
     Indication: Dyspepsia
     Dosage: UNK, OCASSIONAL
     Route: 065
     Dates: start: 201405, end: 201706

REACTIONS (2)
  - Breast cancer stage I [Recovered/Resolved]
  - Renal cancer stage I [Recovered/Resolved]

NARRATIVE: CASE EVENT DATE: 20170601
